FAERS Safety Report 25368614 (Version 1)
Quarter: 2025Q2

REPORT INFORMATION
  Report Type: Spontaneous
  Country: US (occurrence: None)
  Receive Date: 20250528
  Receipt Date: 20250528
  Transmission Date: 20250716
  Serious: Yes (Death, Other)
  Sender: FDA-CTU
  Company Number: None

PATIENT
  Sex: Male

DRUGS (1)
  1. BCG LIVE [Suspect]
     Active Substance: BCG LIVE

REACTIONS (4)
  - Bovine tuberculosis [None]
  - Bone tuberculosis [None]
  - Lichen sclerosus [None]
  - Transmission of an infectious agent via product [None]
